FAERS Safety Report 18579050 (Version 1)
Quarter: 2020Q4

REPORT INFORMATION
  Report Type: Spontaneous
  Country: US (occurrence: US)
  Receive Date: 20201203
  Receipt Date: 20201203
  Transmission Date: 20210114
  Serious: Yes (Other)
  Sender: FDA-Public Use
  Company Number: None

PATIENT
  Age: 34 Year
  Sex: Female
  Weight: 119 kg

DRUGS (5)
  1. AMPICILLIN-SULBACTAM [Concomitant]
     Active Substance: AMPICILLIN SODIUM\SULBACTAM SODIUM
     Dates: start: 20201117, end: 20201119
  2. LEVETIRACETAM 1500MG [Concomitant]
     Active Substance: LEVETIRACETAM
     Dates: start: 20201117, end: 20201119
  3. NS [Concomitant]
     Active Substance: SODIUM CHLORIDE
     Dates: start: 20201117, end: 20201119
  4. VANCOMYCIN [Suspect]
     Active Substance: VANCOMYCIN
     Indication: INFECTION
     Route: 041
     Dates: start: 20201117, end: 20201118
  5. FAMOTIDINE. [Concomitant]
     Active Substance: FAMOTIDINE
     Dates: start: 20201117, end: 20201119

REACTIONS (3)
  - Respiratory distress [None]
  - Wheezing [None]
  - Stridor [None]

NARRATIVE: CASE EVENT DATE: 20201118
